FAERS Safety Report 20944128 (Version 1)
Quarter: 2022Q2

REPORT INFORMATION
  Report Type: Spontaneous
  Country: US (occurrence: US)
  Receive Date: 20220610
  Receipt Date: 20220610
  Transmission Date: 20220720
  Serious: No
  Sender: FDA-Public Use
  Company Number: US-Global Blood Therapeutics Inc-US-GBT-22-02542

PATIENT
  Sex: Male

DRUGS (2)
  1. OXBRYTA [Suspect]
     Active Substance: VOXELOTOR
     Indication: Sickle cell disease
     Dosage: ORAL SUSPENSION
     Route: 048
     Dates: start: 20220210, end: 2022
  2. OXBRYTA [Suspect]
     Active Substance: VOXELOTOR
     Dosage: ORAL SUSPENSION
     Route: 048
     Dates: start: 2022, end: 202204

REACTIONS (1)
  - Hypersensitivity [Unknown]

NARRATIVE: CASE EVENT DATE: 20220101
